FAERS Safety Report 7074419-7 (Version None)
Quarter: 2010Q4

REPORT INFORMATION
  Report Type: 
  Country: None (occurrence: None)
  Receive Date: 20101029
  Receipt Date: 20101022
  Transmission Date: 20110411
  Serious: Yes (Life-Threatening, Hospitalization)
  Sender: FDA-Public Use
  Company Number: FR-PFIZER INC-2010134298

PATIENT
  Age: 54 Year
  Sex: Male

DRUGS (26)
  1. SOLU-MEDROL [Suspect]
     Dosage: 60 MG, SINGLE
     Route: 042
     Dates: start: 20100913, end: 20100913
  2. SOLU-MEDROL [Suspect]
     Dosage: 170 MG, 1X/DAY
     Route: 042
     Dates: start: 20100913, end: 20100913
  3. ELVORINE [Suspect]
     Indication: ANAEMIA
     Dosage: 400 MG, SINGLE
     Route: 042
     Dates: start: 20100913, end: 20100913
  4. ELVORINE [Suspect]
     Dosage: 170 MG, 1X/DAY
     Route: 042
     Dates: start: 20100913, end: 20100913
  5. OXALIPLATIN [Suspect]
     Indication: RECTAL CANCER
     Dosage: 170 MG, SINGLE
     Route: 042
     Dates: start: 20100913, end: 20100913
  6. OXALIPLATIN [Suspect]
     Dosage: 170 MG, 1X/DAY
     Route: 042
     Dates: start: 20100913, end: 20100913
  7. POLARAMINE [Suspect]
     Indication: URTICARIA
     Dosage: 5 MG, SINGLE
     Route: 042
     Dates: start: 20100913, end: 20100913
  8. POLARAMINE [Suspect]
     Dosage: 170 MG, 1X/DAY
     Route: 042
     Dates: start: 20100913, end: 20100913
  9. POLARAMINE [Suspect]
     Dosage: 5 MG, UNK
     Route: 042
     Dates: start: 20100913, end: 20100913
  10. ERBITUX [Suspect]
     Indication: RECTAL CANCER
     Dosage: 1 G, MONTHLY
     Route: 042
     Dates: start: 20100913, end: 20100913
  11. ERBITUX [Suspect]
     Dosage: 170 MG, 1X/DAY
     Route: 042
     Dates: start: 20100913, end: 20100913
  12. ERBITUX [Suspect]
     Dosage: 5 MG, UNK
     Route: 042
     Dates: start: 20100913, end: 20100913
  13. CALCIUM GLUCONATE [Suspect]
     Indication: ADVERSE DRUG REACTION
     Dosage: 1 G, SINGLE
     Route: 042
     Dates: start: 20100913, end: 20100913
  14. CALCIUM GLUCONATE [Suspect]
     Dosage: 170 MG, 1X/DAY
     Route: 042
     Dates: start: 20100913, end: 20100913
  15. CALCIUM GLUCONATE [Suspect]
     Dosage: 5 MG, UNK
     Route: 042
     Dates: start: 20100913, end: 20100913
  16. MAGNESIUM SULFATE [Suspect]
     Indication: ADVERSE DRUG REACTION
     Dosage: 1500 MG, SINGLE
     Route: 042
     Dates: start: 20100913, end: 20100913
  17. MAGNESIUM SULFATE [Suspect]
     Dosage: 170 MG, 1X/DAY
     Route: 042
     Dates: start: 20100913, end: 20100913
  18. MAGNESIUM SULFATE [Suspect]
     Dosage: 5 MG, UNK
     Route: 042
     Dates: start: 20100913, end: 20100913
  19. EMEND [Suspect]
     Indication: VOMITING
     Dosage: 115 MG, SINGLE
     Route: 042
     Dates: start: 20100913, end: 20100913
  20. EMEND [Suspect]
     Dosage: 170 MG, 1X/DAY
     Route: 042
     Dates: start: 20100913, end: 20100913
  21. EMEND [Suspect]
     Dosage: 5 MG, UNK
     Route: 042
     Dates: start: 20100913, end: 20100913
  22. GLUCOPHAGE [Concomitant]
  23. EZETIMIBE/SIMVASTATIN [Concomitant]
  24. KARDEGIC [Concomitant]
  25. TAREG [Concomitant]
  26. BISOPROLOL [Concomitant]

REACTIONS (2)
  - HYPOTENSION [None]
  - OXYGEN SATURATION DECREASED [None]
